FAERS Safety Report 26159117 (Version 1)
Quarter: 2025Q4

REPORT INFORMATION
  Report Type: Spontaneous
  Country: CN (occurrence: CN)
  Receive Date: 20251216
  Receipt Date: 20251216
  Transmission Date: 20260117
  Serious: Yes (Other)
  Sender: JOHNSON AND JOHNSON
  Company Number: CN-JNJFOC-20251210790

PATIENT

DRUGS (2)
  1. SPRAVATO [Suspect]
     Active Substance: ESKETAMINE
     Indication: Product used for unknown indication
     Route: 045
  2. SPRAVATO [Suspect]
     Active Substance: ESKETAMINE
     Dosage: 28 MG X 3 BOTTLES/BOX
     Route: 045
     Dates: start: 20251202, end: 20251202

REACTIONS (7)
  - Restlessness [Unknown]
  - Soliloquy [Unknown]
  - Feeling drunk [Unknown]
  - Dissociative disorder [Unknown]
  - Agitation [Unknown]
  - Irritability [Unknown]
  - Psychomotor hyperactivity [Unknown]

NARRATIVE: CASE EVENT DATE: 20251202
